FAERS Safety Report 5302985-8 (Version None)
Quarter: 2007Q2

REPORT INFORMATION
  Report Type: 
  Country: None (occurrence: None)
  Receive Date: 20070420
  Receipt Date: 20070409
  Transmission Date: 20071010
  Serious: Yes (Hospitalization)
  Sender: FDA-Public Use
  Company Number: US-JNJFOC-20070402363

PATIENT
  Sex: Female
  Weight: 63.5 kg

DRUGS (11)
  1. FENTANYL TRANSDERMAL SYSTEM [Suspect]
     Indication: PAIN
     Route: 062
  2. DURAGESIC-100 [Suspect]
     Indication: PAIN
     Route: 062
  3. EFFEXOR [Suspect]
     Indication: DEPRESSION
     Route: 048
  4. LASIX [Concomitant]
     Indication: FLUID RETENTION
     Route: 048
  5. NORVASC [Concomitant]
     Indication: HYPERTENSION
     Route: 048
  6. TOPRAL [Concomitant]
     Indication: HYPERTENSION
     Route: 048
  7. LORAZEPAM [Concomitant]
     Indication: NERVOUSNESS
     Route: 048
  8. PHENERGAN HCL [Concomitant]
     Indication: NAUSEA
     Route: 048
  9. POTASSIUM ACETATE [Concomitant]
     Indication: DRUG USE FOR UNKNOWN INDICATION
     Route: 048
  10. LORTAB [Concomitant]
     Indication: PAIN
     Route: 048
  11. PERINATAL VITAMIN REPLACEMENT [Concomitant]

REACTIONS (4)
  - DEPRESSION [None]
  - HIP FRACTURE [None]
  - INFECTION [None]
  - POST PROCEDURAL COMPLICATION [None]
